FAERS Safety Report 5675932-7 (Version None)
Quarter: 2008Q1

REPORT INFORMATION
  Report Type: 
  Country: None (occurrence: None)
  Receive Date: 20080321
  Receipt Date: 20080317
  Transmission Date: 20080703
  Serious: Yes (Hospitalization, Other)
  Sender: FDA-Public Use
  Company Number: B0513348A

PATIENT
  Age: 34 Year
  Sex: Female

DRUGS (5)
  1. EPIVIR [Suspect]
     Indication: HIV INFECTION
     Dosage: 50MG SINGLE DOSE
     Route: 042
     Dates: start: 20080317, end: 20080317
  2. EPIVIR [Suspect]
     Route: 048
  3. ZIAGEN [Suspect]
     Indication: HIV INFECTION
     Route: 048
  4. KALETRA [Concomitant]
     Indication: HIV INFECTION
     Route: 048
  5. DIALYSIS [Concomitant]
     Indication: RENAL FAILURE

REACTIONS (4)
  - ENDOCARDITIS [None]
  - INCORRECT ROUTE OF DRUG ADMINISTRATION [None]
  - PHARMACEUTICAL PRODUCT COMPLAINT [None]
  - PYREXIA [None]
